FAERS Safety Report 9523247 (Version 2)
Quarter: 2013Q4

REPORT INFORMATION
  Report Type: Report from Study
  Country: AR (occurrence: AR)
  Receive Date: 20130913
  Receipt Date: 20131203
  Transmission Date: 20140711
  Serious: Yes (Other)
  Sender: FDA-Public Use
  Company Number: PHHY2013AR101641

PATIENT
  Sex: Female

DRUGS (5)
  1. EXFORGE [Suspect]
     Indication: HYPERTENSION
     Dosage: 1 DF OR 2 DF (160/5MG) DAILY
     Route: 048
  2. SERETIDE [Concomitant]
     Indication: ASTHMA
     Dosage: UNK UKN, UNK
  3. VENTOLIN                           /00942701/ [Concomitant]
     Indication: ASTHMA
     Dosage: UNK UKN, UNK
  4. DECADRON                                /CAN/ [Concomitant]
     Indication: ASTHMA
     Dosage: UNK UKN, UNK
  5. DECADRON                                /CAN/ [Concomitant]
     Dosage: UNK
     Dates: start: 20130826

REACTIONS (3)
  - Asthma [Recovering/Resolving]
  - Nervousness [Recovering/Resolving]
  - Blood pressure increased [Recovering/Resolving]
